FAERS Safety Report 7296523-0 (Version None)
Quarter: 2011Q1

REPORT INFORMATION
  Report Type: 
  Country: None (occurrence: None)
  Receive Date: 20110216
  Receipt Date: 20110203
  Transmission Date: 20110831
  Serious: Yes (Hospitalization, Other)
  Sender: FDA-Public Use
  Company Number: PHHY2010JP84200

PATIENT
  Sex: Female
  Weight: 51 kg

DRUGS (16)
  1. OLMETEC [Concomitant]
     Route: 048
     Dates: start: 20101022
  2. BASEN [Concomitant]
     Dosage: 0.6 MG, UNK
     Route: 048
  3. RASILEZ [Suspect]
     Indication: HYPERTENSION
     Dosage: 150 MG, QD
     Route: 048
     Dates: start: 20101126, end: 20101206
  4. ADALAT CC [Concomitant]
     Route: 048
     Dates: start: 20100723
  5. LIPITOR [Concomitant]
     Dosage: 10 MG, UNK
     Route: 048
  6. MARZULENE S [Concomitant]
     Dosage: 1.5 G, UNK
     Route: 048
  7. RENAGEL [Concomitant]
     Dosage: 3000 MG, UNK
     Route: 048
  8. PROMAC [Concomitant]
     Dosage: 75 MG, UNK
     Route: 048
  9. ONEALFA [Concomitant]
     Dosage: 0.5 UG, UNK
     Route: 048
  10. ADALAT CC [Concomitant]
     Dosage: 60 MG, UNK
     Route: 048
     Dates: start: 20100625
  11. LASIX [Concomitant]
     Route: 048
     Dates: start: 20101012
  12. LASIX [Concomitant]
     Dosage: 40 MG, UNK
     Route: 048
     Dates: start: 20100806
  13. LENDORMIN [Concomitant]
     Dosage: 0.25 MG, UNK
     Route: 048
  14. OLMETEC [Concomitant]
     Dosage: 20 MG, UNK
     Route: 048
  15. EPADEL [Concomitant]
     Dosage: 1800 MG, UNK
     Route: 048
  16. MYONAL [Concomitant]
     Dosage: 150 MG, UNK
     Route: 048

REACTIONS (3)
  - PERITONEAL PERMEABILITY INCREASED [None]
  - EYE DISORDER [None]
  - OEDEMA [None]
